FAERS Safety Report 8762226 (Version 1)
Quarter: 2012Q4

REPORT INFORMATION
  Report Type: 
  Country: FI (occurrence: FI)
  Receive Date: 20120828
  Receipt Date: 20120828
  Transmission Date: 20130627
  Serious: Yes (Other)
  Sender: FDA-Public Use
  Company Number: FI-PFIZER INC-2012208213

PATIENT
  Age: 46 Year
  Sex: Female

DRUGS (1)
  1. SALAZOPYRIN [Suspect]
     Indication: RHEUMATOID ARTHRITIS
     Dosage: UNK
     Route: 048
     Dates: end: 20120805

REACTIONS (2)
  - Haematuria [Recovered/Resolved]
  - Renal disorder [Recovered/Resolved]
